FAERS Safety Report 5526563-0 (Version None)
Quarter: 2007Q4

REPORT INFORMATION
  Report Type: 
  Country: None (occurrence: None)
  Receive Date: 20071121
  Receipt Date: 20071121
  Transmission Date: 20080405
  Serious: Yes (Disabling)
  Sender: FDA-Public Use
  Company Number: None

PATIENT
  Sex: Female
  Weight: 80 kg

DRUGS (2)
  1. GADOLINIUM [Suspect]
     Indication: BLINDNESS UNILATERAL
     Dosage: IV
     Route: 042
     Dates: start: 20061201
  2. GADOLINIUM [Suspect]
     Indication: BLINDNESS UNILATERAL
     Dosage: IV
     Route: 042
     Dates: start: 20070301

REACTIONS (5)
  - ARTHRALGIA [None]
  - JOINT STIFFNESS [None]
  - MUSCULOSKELETAL STIFFNESS [None]
  - MYALGIA [None]
  - SKIN HYPERTROPHY [None]
